FAERS Safety Report 8361501-7 (Version None)
Quarter: 2012Q2

REPORT INFORMATION
  Report Type: 
  Country: None (occurrence: None)
  Receive Date: 20120514
  Receipt Date: 20120504
  Transmission Date: 20120825
  Serious: Yes (Life-Threatening)
  Sender: FDA-Public Use
  Company Number: A0977025A

PATIENT
  Age: 46 Year
  Sex: Male

DRUGS (1)
  1. PAROXETINE HYDROCHLORIDE [Suspect]
     Indication: EMOTIONAL DISTRESS
     Dosage: 40 MG/DAY

REACTIONS (8)
  - SUICIDAL IDEATION [None]
  - AKATHISIA [None]
  - DELIRIUM [None]
  - AGGRESSION [None]
  - HOMICIDE [None]
  - APPARENT LIFE THREATENING EVENT [None]
  - MANIA [None]
  - GENERAL PHYSICAL HEALTH DETERIORATION [None]
